FAERS Safety Report 6242484-2 (Version None)
Quarter: 2009Q2

REPORT INFORMATION
  Report Type: 
  Country: None (occurrence: None)
  Receive Date: 20090622
  Receipt Date: 20090622
  Transmission Date: 20091009
  Serious: No
  Sender: FDA-Public Use
  Company Number: None

PATIENT
  Age: 65 Year
  Sex: Male
  Weight: 81.6475 kg

DRUGS (1)
  1. ZICAM ZINCUM GLUCONICUM 2X ZICAM LLC [Suspect]
     Indication: NASOPHARYNGITIS
     Dosage: NASAL GEL SWAB TWICE DAILY NASAL
     Route: 045
     Dates: start: 20090302, end: 20090303

REACTIONS (3)
  - ANOSMIA [None]
  - DYSGEUSIA [None]
  - FEAR [None]
